FAERS Safety Report 21402992 (Version 1)
Quarter: 2022Q3

REPORT INFORMATION
  Report Type: Spontaneous
  Country: US (occurrence: None)
  Receive Date: 20220930
  Receipt Date: 20220930
  Transmission Date: 20221027
  Serious: No
  Sender: FDA-Public Use
  Company Number: None

PATIENT
  Age: 70 Year
  Sex: Male
  Weight: 103.95 kg

DRUGS (8)
  1. BACTRIM [Suspect]
     Active Substance: SULFAMETHOXAZOLE\TRIMETHOPRIM
     Indication: Urinary tract infection
     Dates: start: 20220926, end: 20220929
  2. BACTRIM [Suspect]
     Active Substance: SULFAMETHOXAZOLE\TRIMETHOPRIM
     Indication: Nephrolithiasis
  3. SIMVASTATIN [Concomitant]
     Active Substance: SIMVASTATIN
  4. METFORMIN [Concomitant]
     Active Substance: METFORMIN HYDROCHLORIDE
  5. lisnopril [Concomitant]
  6. TOUJEO [Concomitant]
     Active Substance: INSULIN GLARGINE
  7. VITAMIN D [Concomitant]
     Active Substance: VITAMIN D NOS
  8. IRON [Concomitant]
     Active Substance: IRON

REACTIONS (11)
  - Diarrhoea [None]
  - Dizziness [None]
  - Nausea [None]
  - Headache [None]
  - Pruritus [None]
  - Abdominal distension [None]
  - Constipation [None]
  - Nervousness [None]
  - Myalgia [None]
  - Arthralgia [None]
  - Flatulence [None]

NARRATIVE: CASE EVENT DATE: 20220928
